FAERS Safety Report 15981008 (Version 2)
Quarter: 2019Q1

REPORT INFORMATION
  Report Type: Report from Study
  Country: US (occurrence: US)
  Receive Date: 20190219
  Receipt Date: 20190312
  Transmission Date: 20190418
  Serious: Yes (Other)
  Sender: FDA-Public Use
  Company Number: US-GILEAD-2018-0377704

PATIENT
  Age: 60 Year
  Sex: Male

DRUGS (7)
  1. AMBRISENTAN [Suspect]
     Active Substance: AMBRISENTAN
     Indication: PULMONARY ARTERIAL HYPERTENSION
     Dosage: 10 MG, QD
     Route: 065
     Dates: start: 20090922
  2. TYVASO [Suspect]
     Active Substance: TREPROSTINIL
     Dosage: 54 UG (9 BREATHS), QID
  3. TYVASO [Suspect]
     Active Substance: TREPROSTINIL
     Dosage: 54 UG (9 BREATHS), BID
  4. ADCIRCA [Suspect]
     Active Substance: TADALAFIL
     Indication: PRODUCT USED FOR UNKNOWN INDICATION
     Route: 065
  5. AMBRISENTAN [Suspect]
     Active Substance: AMBRISENTAN
     Indication: PULMONARY HYPERTENSION
  6. TYVASO [Suspect]
     Active Substance: TREPROSTINIL
     Dosage: 24 UG (4 BREATHS), BID
  7. TYVASO [Suspect]
     Active Substance: TREPROSTINIL
     Indication: PULMONARY ARTERIAL HYPERTENSION
     Dosage: 36 UG, QID
     Dates: start: 20180124

REACTIONS (2)
  - Euphoric mood [Recovered/Resolved]
  - Amnesia [Not Recovered/Not Resolved]

NARRATIVE: CASE EVENT DATE: 2018
